FAERS Safety Report 7301929 (Version 4)
Quarter: 2018Q1

REPORT INFORMATION
  Report Type: Report from Study
  Country: IN (occurrence: IN)
  Receive Date: 20100302
  Receipt Date: 20180328
  Transmission Date: 20180509
  Serious: Yes (Death, Hospitalization, Other)
  Sender: FDA-Public Use
  Company Number: IN-BRISTOL-MYERS SQUIBB COMPANY-14985279

PATIENT
  Age: 70 Year
  Sex: Male

DRUGS (14)
  1. CARBOPLATIN. [Suspect]
     Active Substance: CARBOPLATIN
     Indication: NON-SMALL CELL LUNG CANCER
     Dosage: 377 MG, EVERY 3 WEEKS
     Route: 042
     Dates: start: 20090822, end: 20091123
  2. FIGITUMUMAB [Concomitant]
     Active Substance: FIGITUMUMAB
     Indication: NON-SMALL CELL LUNG CANCER
     Dosage: 1140 MG, EVERY 3 WEEKS
     Route: 042
     Dates: start: 20090822, end: 20091123
  3. MINERALS [Concomitant]
     Active Substance: MINERALS
     Indication: PRODUCT USED FOR UNKNOWN INDICATION
     Dosage: UNK
     Route: 065
     Dates: start: 20100101
  4. SODIUM FLUORIDE. [Concomitant]
     Active Substance: SODIUM FLUORIDE
     Indication: LEFT VENTRICULAR DYSFUNCTION
     Dosage: 1 DF, QD
     Route: 065
     Dates: start: 20100101
  5. DYTOR [Concomitant]
     Active Substance: TORSEMIDE
     Indication: LEFT VENTRICULAR DYSFUNCTION
     Dosage: 20 MG, BID
     Route: 065
     Dates: start: 20091229
  6. FLAVEDON [Concomitant]
     Indication: LEFT VENTRICULAR DYSFUNCTION
     Dosage: 35 MG, BID
     Route: 065
     Dates: start: 20091224
  7. ASPIRIN. [Suspect]
     Active Substance: ASPIRIN
     Indication: PRODUCT USED FOR UNKNOWN INDICATION
     Dosage: 150 MG, QD
     Route: 048
     Dates: start: 20100130, end: 20100206
  8. CARDIOVAS [Concomitant]
     Active Substance: ISOSORBIDE MONONITRATE
     Indication: LEFT VENTRICULAR DYSFUNCTION
     Dosage: 1.56 MG, BID
     Route: 065
     Dates: start: 20091224
  9. PACLITAXEL. [Suspect]
     Active Substance: PACLITAXEL
     Indication: NON-SMALL CELL LUNG CANCER
     Dosage: 238 MG, EVERY 3 WEEKS
     Route: 042
     Dates: start: 20090822, end: 20091123
  10. CREMAFFIN [Concomitant]
     Indication: PRODUCT USED FOR UNKNOWN INDICATION
     Dosage: UNK
     Route: 065
     Dates: start: 20100206, end: 20100206
  11. NUCARNIT                           /00878601/ [Concomitant]
     Indication: LEFT VENTRICULAR DYSFUNCTION
     Dosage: 300 MG, BID
     Route: 065
     Dates: start: 20091229
  12. IMDUR [Concomitant]
     Active Substance: ISOSORBIDE MONONITRATE
     Indication: LEFT VENTRICULAR DYSFUNCTION
     Dosage: 30 MG, QD
     Route: 065
     Dates: start: 20091229
  13. CARVEDILOL. [Concomitant]
     Active Substance: CARVEDILOL
     Indication: PRODUCT USED FOR UNKNOWN INDICATION
     Dosage: UNK
     Route: 065
     Dates: start: 20091224
  14. FOLVITE                            /00024201/ [Concomitant]
     Indication: PRODUCT USED FOR UNKNOWN INDICATION
     Dosage: 5 MG, BID
     Route: 065
     Dates: start: 20100101

REACTIONS (10)
  - Cardio-respiratory arrest [Fatal]
  - Seizure [Not Recovered/Not Resolved]
  - Gastrointestinal haemorrhage [Recovering/Resolving]
  - Diarrhoea [Recovering/Resolving]
  - Glossitis [Not Recovered/Not Resolved]
  - Septic shock [Fatal]
  - Decreased appetite [Not Recovered/Not Resolved]
  - Hemiparesis [Not Recovered/Not Resolved]
  - Asthenia [Not Recovered/Not Resolved]
  - Cerebrovascular accident [Fatal]

NARRATIVE: CASE EVENT DATE: 20100130
